FAERS Safety Report 21266639 (Version 1)
Quarter: 2022Q3

REPORT INFORMATION
  Report Type: Spontaneous
  Country: US (occurrence: None)
  Receive Date: 20220826
  Receipt Date: 20220826
  Transmission Date: 20221027
  Serious: Yes (Other)
  Sender: FDA-Public Use
  Company Number: None

PATIENT
  Sex: Male

DRUGS (7)
  1. ALECENSA [Suspect]
     Active Substance: ALECTINIB HYDROCHLORIDE
     Indication: Lung carcinoma cell type unspecified stage 0
     Dosage: 150 MG ORAL?TAKE 4 CAPSULES BY MOUTH TWICE DAILY TAKE WITH FOOD
     Route: 048
     Dates: start: 20210211
  2. ASPIRIN TAB 325MG EC [Concomitant]
  3. CLINDAMYCIN [Concomitant]
     Active Substance: CLINDAMYCIN
  4. FAMOTIDINE TAB 20MG [Concomitant]
  5. QUERCETIN TAB [Concomitant]
  6. VIT C/ROSE TAB [Concomitant]
  7. VITAMIN D3 CAP 10000 [Concomitant]

REACTIONS (1)
  - Therapy interrupted [None]
